FAERS Safety Report 18163601 (Version 1)
Quarter: 2020Q3

REPORT INFORMATION
  Report Type: Spontaneous
  Country: AU (occurrence: AU)
  Receive Date: 20200818
  Receipt Date: 20200818
  Transmission Date: 20201103
  Serious: Yes (Hospitalization, Other)
  Sender: FDA-Public Use
  Company Number: AU-MYLANLABS-2020M1072074

PATIENT
  Age: 69 Year
  Sex: Male

DRUGS (3)
  1. PREDNISOLONE. [Suspect]
     Active Substance: PREDNISOLONE
     Indication: IMMUNOSUPPRESSANT DRUG THERAPY
     Route: 065
  2. TACROLIMUS. [Suspect]
     Active Substance: TACROLIMUS
     Indication: IMMUNOSUPPRESSANT DRUG THERAPY
     Route: 065
  3. MYCOPHENOLATE MOFETIL. [Suspect]
     Active Substance: MYCOPHENOLATE MOFETIL
     Indication: IMMUNOSUPPRESSANT DRUG THERAPY
     Dosage: UNK
     Route: 065

REACTIONS (8)
  - Pseudomonas infection [Recovered/Resolved]
  - Aspergillus infection [Recovered/Resolved]
  - Human polyomavirus infection [Recovered/Resolved]
  - Alveolar proteinosis [Recovered/Resolved]
  - Pneumonia [Recovered/Resolved]
  - Adenovirus infection [Recovered/Resolved]
  - Mycobacterium avium complex infection [Recovered/Resolved]
  - Enterobacter infection [Recovered/Resolved]
